FAERS Safety Report 7773847-1 (Version None)
Quarter: 2011Q3

REPORT INFORMATION
  Report Type: 
  Country: None (occurrence: None)
  Receive Date: 20110920
  Receipt Date: 20110912
  Transmission Date: 20111222
  Serious: Yes (Other)
  Sender: FDA-Public Use
  Company Number: DSA_47603_2011

PATIENT
  Age: 55 Year
  Sex: Male

DRUGS (4)
  1. CYCLOSPORINE [Concomitant]
  2. MYCOPHENOLATE MOFETIL [Suspect]
     Indication: KERATOPLASTY
     Dosage: (1000 MG BID)
  3. CORTICOSTEROID NOS (STEROID) [Suspect]
     Indication: KERATOPATHY
     Dosage: (30 MG QD ORAL), (30 MG QD ORAL), (30 MG QD ORAL)
     Route: 048
  4. ACYCLOVIR [Suspect]
     Indication: KERATITIS HERPETIC
     Dosage: (400 MG BID ORAL), (400 MG BID ORAL)
     Route: 048

REACTIONS (4)
  - HYPERTENSION [None]
  - CORNEAL GRAFT REJECTION [None]
  - KERATOPLASTY [None]
  - GRAND MAL CONVULSION [None]
